FAERS Safety Report 4945352-9 (Version None)
Quarter: 2006Q1

REPORT INFORMATION
  Report Type: 
  Country: None (occurrence: None)
  Receive Date: 20060315
  Receipt Date: 20060315
  Transmission Date: 20060701
  Serious: Yes (Hospitalization)
  Sender: FDA-Public Use
  Company Number: None

PATIENT
  Age: 67 Year
  Sex: Male
  Weight: 85.1 kg

DRUGS (38)
  1. CLOFARABINE [Suspect]
     Indication: ACUTE MYELOID LEUKAEMIA
     Dosage: 47.7 MG X4 DAYS IV
     Route: 042
     Dates: start: 20060128, end: 20060201
  2. AMOXICILLIN + CLAVULANATE POTASSIUM [Concomitant]
  3. MAGNESIUM SULFATE [Concomitant]
  4. ROSIGLITAZONE [Concomitant]
  5. METFORMIN [Concomitant]
  6. IMIPENEM-CILASTATIN [Concomitant]
  7. ACETAMINOPHEN [Concomitant]
  8. DEXTROSE 40% D50W 25ML [Concomitant]
  9. GLUCAGON [Concomitant]
  10. SLIDING SCALE 2 REGULAR INSULIN [Concomitant]
  11. ALBUTEROL [Concomitant]
  12. ACYCLOVIR [Concomitant]
  13. ESOMEPRAZOLE [Concomitant]
  14. THERAPEUTIC MULTIVITAMIN [Concomitant]
  15. FLUVASTATIN [Concomitant]
  16. NICOTINE [Concomitant]
  17. AZITHROMYCIN [Concomitant]
  18. METOCLOPRAMIDE [Concomitant]
  19. VANCOMYCIN [Concomitant]
  20. TIOTROPIUM [Concomitant]
  21. FLUTICASONE-SALMETEROL [Concomitant]
  22. COSYNTHROPIN [Concomitant]
  23. NICOTINE 14 MG/24 HR [Concomitant]
  24. SODIUM CHLORIDE 0.9% [Concomitant]
  25. VORICONAZOLE [Concomitant]
  26. IPRATROPIUM 0.02% [Concomitant]
  27. DOPAMINE [Concomitant]
  28. NOREPINEPHRINE [Concomitant]
  29. TAMSULOSIN HCL [Concomitant]
  30. HYDROCHLOROTHIAZIDE [Concomitant]
  31. METOPROLOL SUCCINATE [Concomitant]
  32. MAGNESIUM OXIDE [Concomitant]
  33. POTASSIUM CHLORIDE [Concomitant]
  34. MAGNESIUM SULFATE [Concomitant]
  35. GENTAMICIN [Concomitant]
  36. PROCHLORPERAZINE [Concomitant]
  37. VANCOMYCIN [Concomitant]
  38. PIPERACILLIN AND TAZOBACTAM [Concomitant]

REACTIONS (2)
  - HYPOTENSION [None]
  - SEPSIS [None]
